FAERS Safety Report 26203752 (Version 1)
Quarter: 2025Q4

REPORT INFORMATION
  Report Type: Spontaneous
  Country: CN (occurrence: CN)
  Receive Date: 20251226
  Receipt Date: 20251226
  Transmission Date: 20260118
  Serious: Yes (Hospitalization)
  Sender: NOVO NORDISK
  Company Number: None

PATIENT
  Age: 40 Year
  Sex: Female
  Weight: 62.7 kg

DRUGS (2)
  1. VICTOZA [Suspect]
     Active Substance: LIRAGLUTIDE
     Indication: Weight control
     Dosage: 7.2 MG
     Route: 058
     Dates: start: 20251110, end: 202511
  2. VICTOZA [Suspect]
     Active Substance: LIRAGLUTIDE
     Indication: Diabetes mellitus
     Dosage: 0.6 MG, QD
     Route: 058
     Dates: start: 20251029

REACTIONS (7)
  - Hepatic function abnormal [Recovering/Resolving]
  - Asthenia [Unknown]
  - Chest discomfort [Unknown]
  - Dizziness [Unknown]
  - Palpitations [Unknown]
  - Cold sweat [Unknown]
  - Product use issue [Unknown]

NARRATIVE: CASE EVENT DATE: 20251110
